FAERS Safety Report 7012559-9 (Version None)
Quarter: 2010Q3

REPORT INFORMATION
  Report Type: 
  Country: None (occurrence: None)
  Receive Date: 20100922
  Receipt Date: 20100922
  Transmission Date: 20110219
  Serious: Yes (Other)
  Sender: FDA-Public Use
  Company Number: None

PATIENT
  Sex: Male
  Weight: 59.1 kg

DRUGS (4)
  1. DIAZEPAM [Suspect]
     Indication: ANXIETY DISORDER
     Dosage: 10 MG 4 TIMES PER DAY PO
     Route: 048
     Dates: start: 20100824, end: 20100916
  2. DIAZEPAM [Suspect]
     Indication: PANIC DISORDER
     Dosage: 10 MG 4 TIMES PER DAY PO
     Route: 048
     Dates: start: 20100824, end: 20100916
  3. DIAZEPAM [Suspect]
     Indication: ANXIETY DISORDER
     Dosage: UNKNOWN ABOUT 2003
     Dates: start: 20030101
  4. DIAZEPAM [Suspect]
     Indication: PANIC DISORDER
     Dosage: UNKNOWN ABOUT 2003
     Dates: start: 20030101

REACTIONS (5)
  - AGITATION [None]
  - ANXIETY [None]
  - DRUG INEFFECTIVE [None]
  - PRODUCT SUBSTITUTION ISSUE [None]
  - SEDATION [None]
